FAERS Safety Report 7370773-7 (Version None)
Quarter: 2011Q1

REPORT INFORMATION
  Report Type: 
  Country: None (occurrence: None)
  Receive Date: 20110324
  Receipt Date: 20110311
  Transmission Date: 20110831
  Serious: Yes (Other)
  Sender: FDA-Public Use
  Company Number: GB-AMGEN-GBRCT2011005429

PATIENT
  Age: 76 Year
  Weight: 56 kg

DRUGS (2)
  1. ETANERCEPT [Suspect]
     Indication: RHEUMATOID ARTHRITIS
     Dosage: UNK
     Dates: start: 20011213, end: 20020815
  2. TACROLIMUS [Concomitant]
     Dosage: UNK
     Dates: start: 20060327

REACTIONS (1)
  - MALIGNANT NEOPLASM OF EYELID [None]
